FAERS Safety Report 13853708 (Version 1)
Quarter: 2017Q3

REPORT INFORMATION
  Report Type: Spontaneous
  Country: US (occurrence: US)
  Receive Date: 20170810
  Receipt Date: 20170810
  Transmission Date: 20171127
  Serious: Yes (Death)
  Sender: FDA-Public Use
  Company Number: None

PATIENT
  Age: 40 Year

DRUGS (1)
  1. SENSIPAR [Suspect]
     Active Substance: CINACALCET HYDROCHLORIDE
     Indication: ACUTE KIDNEY INJURY
     Route: 048
     Dates: start: 201005, end: 201707

REACTIONS (1)
  - Death [None]

NARRATIVE: CASE EVENT DATE: 20170722
